FAERS Safety Report 23592858 (Version 1)
Quarter: 2024Q1

REPORT INFORMATION
  Report Type: Spontaneous
  Country: US (occurrence: None)
  Receive Date: 20240303
  Receipt Date: 20240303
  Transmission Date: 20240410
  Serious: Yes (Other)
  Sender: FDA-Public Use
  Company Number: None

PATIENT
  Age: 67 Year
  Sex: Female
  Weight: 81 kg

DRUGS (1)
  1. DIPHENHYDRAMINE HYDROCHLORIDE\HYDROCORTISONE\NYSTATIN\TETRACYCLINE HYD [Suspect]
     Active Substance: DIPHENHYDRAMINE HYDROCHLORIDE\HYDROCORTISONE\NYSTATIN\TETRACYCLINE HYDROCHLORIDE
     Indication: Oral candidiasis
     Dosage: OTHER QUANTITY : 1 TABLET(S);?FREQUENCY : TWICE A DAY;?
     Route: 048
     Dates: start: 20240214, end: 20240214

REACTIONS (9)
  - Product use complaint [None]
  - Oral discomfort [None]
  - Foaming at mouth [None]
  - Anaphylactic reaction [None]
  - Dyspnoea [None]
  - Chemical burn of oral cavity [None]
  - Gingival erosion [None]
  - Noninfective gingivitis [None]
  - Product formulation issue [None]

NARRATIVE: CASE EVENT DATE: 20240214
